FAERS Safety Report 15201194 (Version 3)
Quarter: 2019Q1

REPORT INFORMATION
  Report Type: Spontaneous
  Country: US (occurrence: US)
  Receive Date: 20180726
  Receipt Date: 20190320
  Transmission Date: 20190417
  Serious: No
  Sender: FDA-Public Use
  Company Number: US-PFIZER INC-2018299150

PATIENT
  Age: 79 Year
  Sex: Male
  Weight: 80.27 kg

DRUGS (1)
  1. VIAGRA [Suspect]
     Active Substance: SILDENAFIL CITRATE
     Indication: ERECTILE DYSFUNCTION
     Dosage: 50 MG, ONE AS NEEDED BEFORE SEXUAL ACTIVITY
     Dates: end: 201807

REACTIONS (1)
  - Drug effect incomplete [Not Recovered/Not Resolved]
